FAERS Safety Report 6034598-7 (Version None)
Quarter: 2009Q1

REPORT INFORMATION
  Report Type: 
  Country: None (occurrence: None)
  Receive Date: 20090112
  Receipt Date: 20090105
  Transmission Date: 20090719
  Serious: Yes (Life-Threatening, Hospitalization, Other)
  Sender: FDA-Public Use
  Company Number: US-MERCK-0811USA00675

PATIENT
  Age: 69 Year
  Sex: Female

DRUGS (1)
  1. JANUVIA [Suspect]
     Route: 048
     Dates: end: 20080908

REACTIONS (4)
  - ADVERSE EVENT [None]
  - ALANINE AMINOTRANSFERASE INCREASED [None]
  - ASPARTATE AMINOTRANSFERASE INCREASED [None]
  - BLOOD BILIRUBIN INCREASED [None]
